FAERS Safety Report 9108968 (Version 1)
Quarter: 2013Q1

REPORT INFORMATION
  Report Type: Spontaneous
  Country: US (occurrence: US)
  Receive Date: 20130222
  Receipt Date: 20130222
  Transmission Date: 20140127
  Serious: Yes (Other)
  Sender: FDA-Public Use
  Company Number: US-SANOFI-AVENTIS-2013SA015843

PATIENT
  Age: 79 Year
  Sex: Male

DRUGS (2)
  1. LANTUS SOLOSTAR [Suspect]
     Indication: TYPE 2 DIABETES MELLITUS
     Dosage: DOSE:30 UNIT(S)
     Route: 051
     Dates: start: 201204
  2. SOLOSTAR [Suspect]
     Indication: TYPE 2 DIABETES MELLITUS
     Dates: start: 201204

REACTIONS (6)
  - Corneal transplant [Unknown]
  - Eye disorder [Unknown]
  - Eye pain [Unknown]
  - Blindness [Recovering/Resolving]
  - Blood glucose increased [Unknown]
  - Incorrect storage of drug [Unknown]
